FAERS Safety Report 16406918 (Version 3)
Quarter: 2019Q2

REPORT INFORMATION
  Report Type: Report from Study
  Country: BR (occurrence: BR)
  Receive Date: 20190607
  Receipt Date: 20190626
  Transmission Date: 20190711
  Serious: Yes (Hospitalization, Other)
  Sender: FDA-Public Use
  Company Number: PHHY2015BR109417

PATIENT
  Age: 53 Year
  Sex: Male
  Weight: 75 kg

DRUGS (11)
  1. GILENYA [Suspect]
     Active Substance: FINGOLIMOD HYDROCHLORIDE
     Indication: MULTIPLE SCLEROSIS
     Dosage: 0.5 MG, QD
     Route: 048
     Dates: start: 20130730
  2. GILENYA [Suspect]
     Active Substance: FINGOLIMOD HYDROCHLORIDE
     Dosage: 0.5 MG, QD
     Route: 048
     Dates: start: 20130802
  3. AMITRIPTYLINE [Concomitant]
     Active Substance: AMITRIPTYLINE
     Indication: PRODUCT USED FOR UNKNOWN INDICATION
     Dosage: 1 DF (25 MG), QD
     Route: 048
     Dates: start: 2009
  4. BACLOFEN. [Concomitant]
     Active Substance: BACLOFEN
     Indication: ARTHROPATHY
     Dosage: 1 DF (10 MG), TID
     Route: 048
     Dates: start: 2009
  5. LOSARTAN. [Concomitant]
     Active Substance: LOSARTAN
     Indication: BLOOD PRESSURE ABNORMAL
     Dosage: 1 DF (50 MG), BID
     Route: 048
     Dates: start: 2009
  6. SIMSTATIN [Concomitant]
     Active Substance: SIMVASTATIN
     Indication: BLOOD DISORDER
     Dosage: 1 DF (40 MG), QD
     Route: 048
     Dates: start: 2009
  7. GABAPENTIN. [Concomitant]
     Active Substance: GABAPENTIN
     Indication: PAIN
     Dosage: 2 DF (300 MG), BID
     Route: 048
     Dates: start: 2017
  8. ATENOLOL. [Suspect]
     Active Substance: ATENOLOL
     Indication: PRODUCT USED FOR UNKNOWN INDICATION
     Route: 065
  9. AMLODIPINE [Suspect]
     Active Substance: AMLODIPINE BESYLATE
     Indication: BLOOD PRESSURE ABNORMAL
     Dosage: 1 DF (5 MG), QD
     Route: 048
     Dates: start: 2009
  10. HYDROCHLOROTHIAZIDE. [Concomitant]
     Active Substance: HYDROCHLOROTHIAZIDE
     Indication: PRODUCT USED FOR UNKNOWN INDICATION
     Dosage: 1 DF (25 MG), QD
     Route: 048
     Dates: start: 2009
  11. PURAN [Concomitant]
     Active Substance: LEVOTHYROXINE SODIUM
     Indication: THYROID DISORDER
     Dosage: 1 DF (25 MG), QD
     Route: 048
     Dates: start: 2009

REACTIONS (15)
  - Musculoskeletal stiffness [Recovering/Resolving]
  - Gait inability [Not Recovered/Not Resolved]
  - Heart rate decreased [Unknown]
  - Dysstasia [Unknown]
  - Urinary tract infection [Recovered/Resolved]
  - Urinary tract infection [Recovered/Resolved]
  - Hypoaesthesia [Not Recovered/Not Resolved]
  - Fall [Recovering/Resolving]
  - General physical health deterioration [Unknown]
  - Pyrexia [Recovered/Resolved]
  - Pyrexia [Recovered/Resolved]
  - Intervertebral disc protrusion [Recovered/Resolved]
  - Gait disturbance [Not Recovered/Not Resolved]
  - Prostatomegaly [Not Recovered/Not Resolved]
  - Cholelithiasis [Recovered/Resolved]

NARRATIVE: CASE EVENT DATE: 2016
